FAERS Safety Report 5520171-3 (Version None)
Quarter: 2007Q4

REPORT INFORMATION
  Report Type: 
  Country: None (occurrence: None)
  Receive Date: 20071116
  Receipt Date: 20071023
  Transmission Date: 20080405
  Serious: No
  Sender: FDA-Public Use
  Company Number: US-BOEHRINGER INGELHEIM PHARMACEUTICALS, INC.-2007-BP-23177BP

PATIENT
  Age: 49 Year
  Sex: Female

DRUGS (10)
  1. MIRAPEX [Suspect]
     Indication: RESTLESS LEGS SYNDROME
     Route: 048
     Dates: start: 20060609, end: 20070910
  2. AMBIEN CR [Concomitant]
  3. DETROL LA [Concomitant]
  4. ZOLOFT [Concomitant]
  5. HYDROXYZINE [Concomitant]
     Indication: ECZEMA
  6. VYTORIN [Concomitant]
  7. ALTACE [Concomitant]
  8. DICLOFENAC SODIUM [Concomitant]
  9. SYNTHROID [Concomitant]
  10. NEXIUM [Concomitant]

REACTIONS (1)
  - PATHOLOGICAL GAMBLING [None]
